FAERS Safety Report 11076215 (Version 5)
Quarter: 2015Q3

REPORT INFORMATION
  Report Type: Spontaneous
  Country: US (occurrence: US)
  Receive Date: 20150429
  Receipt Date: 20150813
  Transmission Date: 20151125
  Serious: Yes (Other)
  Sender: FDA-Public Use
  Company Number: US-PFIZER INC-2015132227

PATIENT
  Age: 87 Year
  Sex: Female

DRUGS (10)
  1. ZOLOFT [Suspect]
     Active Substance: SERTRALINE HYDROCHLORIDE
     Indication: DEPRESSION
     Dosage: 5 MG, UNK
  2. LIPITOR [Suspect]
     Active Substance: ATORVASTATIN CALCIUM
     Indication: BLOOD CHOLESTEROL
     Dosage: 40 MG, UNK
     Route: 048
  3. ATORVASTATIN [Concomitant]
     Active Substance: ATORVASTATIN
     Dosage: 40 MG, DAILY (AT BEDTIME)
     Route: 048
     Dates: start: 20150505
  4. ACCURETIC [Suspect]
     Active Substance: HYDROCHLOROTHIAZIDE\QUINAPRIL HYDROCHLORIDE
     Indication: BLOOD PRESSURE INCREASED
     Dosage: 1 DF (QUINAPRIL HCL 20 MG/HYDROCHLOROTHIAZIDE 25 MG), 1X/DAY
     Route: 048
  5. VITAMIN D3 [Concomitant]
     Active Substance: CHOLECALCIFEROL
     Dosage: 2000 IU, DAILY
     Route: 048
     Dates: start: 20140327
  6. VITAMIN C [Concomitant]
     Active Substance: ASCORBIC ACID
     Dosage: UNK
  7. VITAMIN C [Concomitant]
     Active Substance: ASCORBIC ACID
     Dosage: 1000 MG, DAILY
     Route: 048
  8. VITAMIN D3 [Concomitant]
     Active Substance: CHOLECALCIFEROL
     Dosage: UNK
  9. XALATAN [Suspect]
     Active Substance: LATANOPROST
     Indication: GLAUCOMA
     Dosage: 0.005 %, 1 GTT IN EACH EYE, 1X/DAY
     Route: 047
  10. CADUET [Suspect]
     Active Substance: AMLODIPINE BESYLATE\ATORVASTATIN CALCIUM
     Indication: BLOOD PRESSURE MEASUREMENT
     Dosage: 1 DF (AMLODIPINE BESILATE 5 MG/ ATORVASTATIN CALCIUM 10MG), UNK

REACTIONS (2)
  - Cardiac disorder [Unknown]
  - Deafness [Not Recovered/Not Resolved]
